FAERS Safety Report 23819553 (Version 1)
Quarter: 2024Q2

REPORT INFORMATION
  Report Type: Spontaneous
  Country: GB (occurrence: GB)
  Receive Date: 20240506
  Receipt Date: 20240506
  Transmission Date: 20240715
  Serious: Yes (Hospitalization)
  Sender: FDA-Public Use
  Company Number: GB-MYLANLABS-2024M1040123

PATIENT
  Sex: Male

DRUGS (1)
  1. CLOZARIL [Suspect]
     Active Substance: CLOZAPINE
     Indication: Schizophrenia
     Dosage: UNK
     Route: 048
     Dates: start: 20090626, end: 20240425

REACTIONS (5)
  - Learning disability [Unknown]
  - Communication disorder [Unknown]
  - Constipation [Unknown]
  - Hyperhidrosis [Unknown]
  - Restlessness [Unknown]
